FAERS Safety Report 5908149-9 (Version None)
Quarter: 2008Q4

REPORT INFORMATION
  Report Type: 
  Country: None (occurrence: None)
  Receive Date: 20081003
  Receipt Date: 20080930
  Transmission Date: 20090506
  Serious: Yes (Hospitalization)
  Sender: FDA-Public Use
  Company Number: CZ-PFIZER INC-2008081875

PATIENT
  Sex: Male

DRUGS (2)
  1. MACUGEN [Suspect]
     Route: 042
     Dates: start: 20080617
  2. FLOXAL EYEDROPS [Concomitant]
     Route: 047
     Dates: start: 20080909, end: 20080915

REACTIONS (1)
  - VITRITIS [None]
